FAERS Safety Report 5488016-8 (Version None)
Quarter: 2007Q4

REPORT INFORMATION
  Report Type: 
  Country: None (occurrence: None)
  Receive Date: 20071017
  Receipt Date: 20071011
  Transmission Date: 20080405
  Serious: Yes (Other)
  Sender: FDA-Public Use
  Company Number: US-JNJFOC-20071003599

PATIENT
  Age: 3 Year
  Sex: Female
  Weight: 22.68 kg

DRUGS (1)
  1. CHILDRENS TYLENOL PLUS COLD GRAPE [Suspect]
     Indication: DRUG USE FOR UNKNOWN INDICATION
     Dosage: LESS THAN 5ML
     Route: 048

REACTIONS (1)
  - HALLUCINATION [None]
